FAERS Safety Report 7262002-X (Version None)
Quarter: 2011Q1

REPORT INFORMATION
  Report Type: 
  Country: None (occurrence: None)
  Receive Date: 20110130
  Receipt Date: 20101104
  Transmission Date: 20110831
  Serious: No
  Sender: FDA-Public Use
  Company Number: US-ABBOTT-10P-163-0683380-00

PATIENT
  Age: 77 Year
  Sex: Male

DRUGS (6)
  1. PROSTATE SUPPORT 300 [Concomitant]
     Indication: PROSTATIC DISORDER
     Dosage: 1-3 TABS DAILY
  2. FOLIC ACID [Concomitant]
     Indication: VITAMIN SUPPLEMENTATION
  3. CALCIUM [Concomitant]
     Indication: MINERAL SUPPLEMENTATION
  4. HUMIRA [Suspect]
     Indication: RHEUMATOID ARTHRITIS
  5. METHOTREXATE [Concomitant]
     Indication: RHEUMATOID ARTHRITIS
  6. MULTI-VITAMIN [Concomitant]
     Indication: VITAMIN SUPPLEMENTATION

REACTIONS (1)
  - INJECTION SITE PAIN [None]
